FAERS Safety Report 10243482 (Version 1)
Quarter: 2014Q2

REPORT INFORMATION
  Report Type: Spontaneous
  Country: US (occurrence: None)
  Receive Date: 20140616
  Receipt Date: 20140616
  Transmission Date: 20141212
  Serious: No
  Sender: FDA-Public Use
  Company Number: None

PATIENT
  Age: 38 Year
  Sex: Female
  Weight: 77.11 kg

DRUGS (1)
  1. TOPAMAX [Suspect]
     Indication: MIGRAINE
     Dosage: 1 PILL AT BEDTIME TAKEN BY MOUTH
     Route: 048

REACTIONS (10)
  - Migraine [None]
  - Hypoaesthesia [None]
  - Paralysis [None]
  - Dysarthria [None]
  - Blindness transient [None]
  - Amnesia [None]
  - Paraesthesia [None]
  - Aura [None]
  - Photopsia [None]
  - Libido decreased [None]
